FAERS Safety Report 10925962 (Version 1)
Quarter: 2015Q1

REPORT INFORMATION
  Report Type: Spontaneous
  Country: US (occurrence: None)
  Receive Date: 20150316
  Receipt Date: 20150316
  Transmission Date: 20150721
  Serious: No
  Sender: FDA-Public Use
  Company Number: None

PATIENT
  Age: 7 Year
  Sex: Male
  Weight: 29.48 kg

DRUGS (6)
  1. METHYLPHENIDATE ER 18MG [Concomitant]
     Active Substance: METHYLPHENIDATE
  2. FISH OIL SUPPLEMENTS [Concomitant]
     Active Substance: FISH OIL
  3. METHYLPHENIDATE ER [Suspect]
     Active Substance: METHYLPHENIDATE
     Indication: ATTENTION DEFICIT/HYPERACTIVITY DISORDER
     Dosage: 2 PILLS
     Route: 048
     Dates: start: 20150301, end: 20150314
  4. CLONIDINE ER [Concomitant]
     Active Substance: CLONIDINE
  5. CHILDREN^S MULTIVITAMIN [Concomitant]
  6. CALCIUM SUPPLEMENT [Concomitant]
     Active Substance: CALCIUM

REACTIONS (3)
  - Product substitution issue [None]
  - Product quality issue [None]
  - Drug effect decreased [None]

NARRATIVE: CASE EVENT DATE: 20150312
